FAERS Safety Report 5131416-6 (Version None)
Quarter: 2006Q4

REPORT INFORMATION
  Report Type: 
  Country: None (occurrence: None)
  Receive Date: 20061020
  Receipt Date: 20060816
  Transmission Date: 20070319
  Serious: Yes (Death, Hospitalization)
  Sender: FDA-Public Use
  Company Number: TW-GLAXOSMITHKLINE-B0435315A

PATIENT
  Age: 19 Year
  Sex: Female

DRUGS (2)
  1. LAMOTRIGINE [Suspect]
     Indication: BIPOLAR DISORDER
     Route: 065
     Dates: start: 20060701, end: 20060808
  2. DEPAKENE [Concomitant]

REACTIONS (3)
  - CONVULSION [None]
  - DEATH [None]
  - ERYTHEMA [None]
